FAERS Safety Report 6490878-2 (Version None)
Quarter: 2009Q4

REPORT INFORMATION
  Report Type: 
  Country: None (occurrence: None)
  Receive Date: 20091211
  Receipt Date: 20091207
  Transmission Date: 20100525
  Serious: Yes (Life-Threatening, Hospitalization)
  Sender: FDA-Public Use
  Company Number: US-CELGENEUS-163-21880-09111267

PATIENT
  Sex: Male
  Weight: 78.088 kg

DRUGS (7)
  1. REVLIMID [Suspect]
     Indication: MULTIPLE MYELOMA
     Route: 048
     Dates: start: 20090902
  2. REVLIMID [Suspect]
     Route: 048
     Dates: start: 20070501, end: 20070101
  3. REVLIMID [Suspect]
     Route: 048
     Dates: start: 20080801, end: 20080101
  4. REVLIMID [Suspect]
     Dates: start: 20091007, end: 20091027
  5. AMLODIPINE [Concomitant]
     Indication: DRUG USE FOR UNKNOWN INDICATION
     Route: 065
  6. PANTOPRAZOLE [Concomitant]
     Indication: DRUG USE FOR UNKNOWN INDICATION
     Route: 065
  7. DECADRON [Concomitant]
     Indication: DRUG USE FOR UNKNOWN INDICATION
     Route: 065

REACTIONS (2)
  - PANCYTOPENIA [None]
  - PNEUMONIA [None]
